FAERS Safety Report 15863670 (Version 2)
Quarter: 2019Q1

REPORT INFORMATION
  Report Type: Spontaneous
  Country: FR (occurrence: FR)
  Receive Date: 20190124
  Receipt Date: 20190214
  Transmission Date: 20190417
  Serious: Yes (Hospitalization)
  Sender: FDA-Public Use
  Company Number: FR-MYLANLABS-2019M1006051

PATIENT
  Age: 77 Year
  Sex: Male

DRUGS (3)
  1. TRAMADOL MYLAN [Suspect]
     Active Substance: TRAMADOL
     Indication: ENTHESOPATHY
     Dosage: 150 MILLIGRAM, QD
     Route: 048
     Dates: start: 2016, end: 201805
  2. TRAMADOL MYLAN [Suspect]
     Active Substance: TRAMADOL
     Indication: ANKYLOSING SPONDYLITIS
  3. ELIQUIS [Concomitant]
     Active Substance: APIXABAN
     Dosage: UNK

REACTIONS (3)
  - Hypotension [Recovered/Resolved]
  - Bradycardia [Recovered/Resolved]
  - Syncope [Recovered/Resolved]

NARRATIVE: CASE EVENT DATE: 201805
